FAERS Safety Report 25749578 (Version 2)
Quarter: 2025Q4

REPORT INFORMATION
  Report Type: Spontaneous
  Country: US (occurrence: US)
  Receive Date: 20250902
  Receipt Date: 20251014
  Transmission Date: 20260118
  Serious: No
  Sender: ROCHE
  Company Number: US-ROCHE-10000373301

PATIENT
  Sex: Male

DRUGS (1)
  1. ERIVEDGE [Suspect]
     Active Substance: VISMODEGIB
     Indication: Basal cell carcinoma
     Dosage: 1 DF
     Route: 048
     Dates: start: 202508

REACTIONS (3)
  - Genital blister [Unknown]
  - Alopecia [Unknown]
  - Fatigue [Unknown]
